FAERS Safety Report 6128666-9 (Version None)
Quarter: 2009Q1

REPORT INFORMATION
  Report Type: 
  Country: None (occurrence: None)
  Receive Date: 20090323
  Receipt Date: 20090316
  Transmission Date: 20090719
  Serious: Yes (Death)
  Sender: FDA-Public Use
  Company Number: MY-PFIZER INC-2009183102

PATIENT

DRUGS (1)
  1. CARDURA [Suspect]
     Dosage: 8 MG, 1X/DAY
     Route: 048

REACTIONS (2)
  - ARRHYTHMIA [None]
  - ORTHOSTATIC HYPOTENSION [None]
